FAERS Safety Report 8094611-2 (Version None)
Quarter: 2012Q1

REPORT INFORMATION
  Report Type: 
  Country: None (occurrence: None)
  Receive Date: 20120131
  Receipt Date: 20120127
  Transmission Date: 20120608
  Serious: Yes (Death)
  Sender: FDA-Public Use
  Company Number: US-ELI_LILLY_AND_COMPANY-US201201008485

PATIENT
  Age: 78 Year
  Sex: Male

DRUGS (1)
  1. CIALIS [Suspect]
     Dosage: 2.5 MG, QD
     Dates: start: 20111201

REACTIONS (1)
  - DEATH [None]
